FAERS Safety Report 7854406-9 (Version None)
Quarter: 2011Q4

REPORT INFORMATION
  Report Type: 
  Country: None (occurrence: None)
  Receive Date: 20111026
  Receipt Date: 20111013
  Transmission Date: 20120403
  Serious: Yes (Hospitalization, Other)
  Sender: FDA-Public Use
  Company Number: SE-JNJFOC-20100209863

PATIENT
  Age: 71 Year
  Sex: Male

DRUGS (3)
  1. PREDNISOLONE [Concomitant]
     Dates: start: 20071016
  2. IMURAN [Concomitant]
     Dates: start: 20071016
  3. REMICADE [Suspect]
     Indication: RHEUMATOID ARTHRITIS
     Route: 042
     Dates: start: 20020826, end: 20091207

REACTIONS (2)
  - PRECANCEROUS SKIN LESION [None]
  - GASTROINTESTINAL CARCINOMA [None]
